FAERS Safety Report 6797413-X (Version None)
Quarter: 2010Q2

REPORT INFORMATION
  Report Type: 
  Country: None (occurrence: None)
  Receive Date: 20100623
  Receipt Date: 20100614
  Transmission Date: 20101027
  Serious: Yes (Death, Hospitalization)
  Sender: FDA-Public Use
  Company Number: 2010JP003438

PATIENT
  Age: 70 Year
  Sex: Female

DRUGS (1)
  1. TACROLIMUS [Suspect]
     Indication: RHEUMATOID ARTHRITIS
     Dosage: 1.5 MG, /D, ORAL
     Route: 048
     Dates: start: 20100225, end: 20100603

REACTIONS (4)
  - CARDIOGENIC SHOCK [None]
  - MYOCARDIAL INFARCTION [None]
  - PNEUMONIA [None]
  - PULMONARY OEDEMA [None]
